FAERS Safety Report 13378393 (Version 1)
Quarter: 2017Q1

REPORT INFORMATION
  Report Type: Spontaneous
  Country: US (occurrence: US)
  Receive Date: 20170328
  Receipt Date: 20170328
  Transmission Date: 20170429
  Serious: No
  Sender: FDA-Public Use
  Company Number: US-PFIZER INC-2016102055

PATIENT
  Age: 63 Year
  Sex: Male
  Weight: 109 kg

DRUGS (1)
  1. LORAZEPAM. [Suspect]
     Active Substance: LORAZEPAM
     Dosage: 1 MG, UNK

REACTIONS (3)
  - Homicidal ideation [Unknown]
  - Thinking abnormal [Unknown]
  - Product tampering [Unknown]
